FAERS Safety Report 14084155 (Version 6)
Quarter: 2019Q1

REPORT INFORMATION
  Report Type: Report from Study
  Country: US (occurrence: US)
  Receive Date: 20171013
  Receipt Date: 20190214
  Transmission Date: 20190417
  Serious: Yes (Hospitalization, Other)
  Sender: FDA-Public Use
  Company Number: US-BRISTOL-MYERS SQUIBB COMPANY-BMS-2017-089990

PATIENT
  Age: 67 Year
  Sex: Male
  Weight: 59.8 kg

DRUGS (2)
  1. RELATLIMAB [Suspect]
     Active Substance: RELATLIMAB
     Indication: GLIOBLASTOMA MULTIFORME
     Dosage: 80 MG, UNK
     Route: 042
     Dates: start: 20170912
  2. NIVOLUMAB [Suspect]
     Active Substance: NIVOLUMAB
     Indication: GLIOBLASTOMA MULTIFORME
     Dosage: 240 MG, UNK
     Route: 042
     Dates: start: 20170912

REACTIONS (3)
  - Seizure [Recovering/Resolving]
  - Pyrexia [Recovered/Resolved]
  - Hemiparesis [Not Recovered/Not Resolved]

NARRATIVE: CASE EVENT DATE: 20170920
